FAERS Safety Report 6770917-1 (Version None)
Quarter: 2010Q2

REPORT INFORMATION
  Report Type: 
  Country: None (occurrence: None)
  Receive Date: 20100616
  Receipt Date: 20100607
  Transmission Date: 20101027
  Serious: Yes (Hospitalization)
  Sender: FDA-Public Use
  Company Number: US-BIOGENIDEC-2010BI019137

PATIENT
  Age: 29 Year
  Sex: Female
  Weight: 131 kg

DRUGS (5)
  1. TYSABRI [Suspect]
     Indication: MULTIPLE SCLEROSIS
     Route: 042
     Dates: start: 20080801, end: 20081101
  2. TYSABRI [Suspect]
     Route: 042
     Dates: start: 20090801
  3. COREG [Concomitant]
     Indication: HEART RATE INCREASED
  4. LEXAPRO [Concomitant]
     Indication: DEPRESSION
  5. MULTI-VITAMIN [Concomitant]
     Indication: DRUG USE FOR UNKNOWN INDICATION

REACTIONS (3)
  - FUNGAL INFECTION [None]
  - HYPOAESTHESIA [None]
  - STRESS [None]
